FAERS Safety Report 6898982-1 (Version None)
Quarter: 2010Q3

REPORT INFORMATION
  Report Type: 
  Country: None (occurrence: None)
  Receive Date: 20100802
  Receipt Date: 20071220
  Transmission Date: 20110219
  Serious: Yes (Other)
  Sender: FDA-Public Use
  Company Number: US-PFIZER INC-2007107411

PATIENT
  Sex: Male
  Weight: 92.727 kg

DRUGS (6)
  1. LYRICA [Suspect]
     Indication: FIBROMYALGIA
     Dates: start: 20071001
  2. VALIUM [Concomitant]
  3. FLEXERIL [Concomitant]
  4. CYMBALTA [Concomitant]
  5. MORPHINE [Concomitant]
  6. LAXATIVES [Concomitant]

REACTIONS (5)
  - FATIGUE [None]
  - HEADACHE [None]
  - OEDEMA PERIPHERAL [None]
  - VISION BLURRED [None]
  - WEIGHT INCREASED [None]
